FAERS Safety Report 7175696-4 (Version None)
Quarter: 2010Q4

REPORT INFORMATION
  Report Type: 
  Country: None (occurrence: None)
  Receive Date: 20101220
  Receipt Date: 20100329
  Transmission Date: 20110411
  Serious: Yes (Hospitalization, Other)
  Sender: FDA-Public Use
  Company Number: US-AMGEN-QUU402748

PATIENT

DRUGS (2)
  1. ENBREL [Suspect]
     Indication: ANKYLOSING SPONDYLITIS
     Dosage: 50 MG, QWK
     Route: 058
  2. ENBREL [Suspect]
     Indication: PSORIATIC ARTHROPATHY

REACTIONS (9)
  - ARTHRALGIA [None]
  - BACK PAIN [None]
  - CELLULITIS STAPHYLOCOCCAL [None]
  - DYSPNOEA [None]
  - NECK PAIN [None]
  - PAIN [None]
  - RASH PRURITIC [None]
  - SKIN MASS [None]
  - TESTICULAR SWELLING [None]
